FAERS Safety Report 4906876-3 (Version None)
Quarter: 2006Q1

REPORT INFORMATION
  Report Type: 
  Country: None (occurrence: None)
  Receive Date: 20060207
  Receipt Date: 20060119
  Transmission Date: 20060701
  Serious: Yes (Hospitalization)
  Sender: FDA-Public Use
  Company Number: FR200601003098

PATIENT
  Age: 65 Year
  Sex: Female

DRUGS (8)
  1. FORTEO [Suspect]
     Indication: OSTEOPOROSIS
     Dosage: 20 UG, DAILY (1/D), SUBCUTANEOUS
     Route: 058
     Dates: start: 20051022, end: 20051219
  2. FORTEO [Concomitant]
  3. FUROSEMIDE [Concomitant]
  4. POTASSIUM CHLORIDE [Concomitant]
  5. TARKA- SLOW RELEAE (TRANDOLAPRIL, VERAPAMIL HYDROCHLORIDE) [Concomitant]
  6. NITRIDERM TTS (GLYCERYL TRINITRATE) [Concomitant]
  7. MONO-TILDIEM                        /FRA/(DILTIAZEM HYDROCHLORIDE) [Concomitant]
  8. KARDEGIC                          /FRA/(ACETYLSALICYLATE LYSINE) [Concomitant]

REACTIONS (2)
  - HYPERHIDROSIS [None]
  - LUNG INFECTION [None]
